FAERS Safety Report 6059543-X (Version None)
Quarter: 2009Q1

REPORT INFORMATION
  Report Type: 
  Country: None (occurrence: None)
  Receive Date: 20090127
  Receipt Date: 20090127
  Transmission Date: 20090719
  Serious: Yes (Death)
  Sender: FDA-Public Use
  Company Number: None

PATIENT
  Age: 2 Year
  Sex: Male
  Weight: 12.2471 kg

DRUGS (2)
  1. SINGULAIR [Suspect]
     Indication: ASTHMA
     Dosage: 4MG A PO
     Route: 048
     Dates: start: 20090113, end: 20090116
  2. SINGULAIR [Suspect]
     Indication: ASTHMA
     Dosage: 4MG A PO
     Route: 048
     Dates: start: 20090121, end: 20090124

REACTIONS (6)
  - AGGRESSION [None]
  - CRYING [None]
  - EAR PAIN [None]
  - GAIT DISTURBANCE [None]
  - INSOMNIA [None]
  - PYREXIA [None]
